FAERS Safety Report 8929189 (Version 1)
Quarter: 2012Q4

REPORT INFORMATION
  Report Type: 
  Country: US (occurrence: US)
  Receive Date: 20121127
  Receipt Date: 20121127
  Transmission Date: 20130627
  Serious: Yes (Death)
  Sender: FDA-Public Use
  Company Number: US-WATSON-2012-20078

PATIENT
  Sex: Male

DRUGS (3)
  1. PROPOXYPHENE HYDROCHLORIDE/ACETAMIN OPHEN [Suspect]
     Indication: PAIN MANAGEMENT
     Dosage: UNK
     Route: 048
  2. DARVOCET                           /00220901/ [Suspect]
     Indication: PAIN MANAGEMENT
     Dosage: UNK
     Route: 048
  3. DARVON                              /00018802/ [Suspect]
     Indication: PAIN MANAGEMENT
     Dosage: UNK
     Route: 048

REACTIONS (1)
  - Cardiovascular disorder [Fatal]
